FAERS Safety Report 12203157 (Version 4)
Quarter: 2016Q3

REPORT INFORMATION
  Report Type: Report from Study
  Country: US (occurrence: US)
  Receive Date: 20160323
  Receipt Date: 20160701
  Transmission Date: 20161109
  Serious: Yes (Hospitalization, Other)
  Sender: FDA-Public Use
  Company Number: PHEH2016US006941

PATIENT
  Age: 38 Year
  Sex: Female
  Weight: 87.8 kg

DRUGS (4)
  1. ESTROGEN [Concomitant]
     Active Substance: ESTRONE\SUS SCROFA OVARY
     Indication: PRODUCT USED FOR UNKNOWN INDICATION
     Dosage: UNK
     Route: 065
  2. GILENYA [Suspect]
     Active Substance: FINGOLIMOD HYDROCHLORIDE
     Indication: MULTIPLE SCLEROSIS
     Dosage: 0.5 MG, QD
     Route: 048
     Dates: start: 20151109, end: 20160511
  3. GABAPENTIN. [Concomitant]
     Active Substance: GABAPENTIN
     Indication: PRODUCT USED FOR UNKNOWN INDICATION
     Dosage: 300 MG, UNK
     Route: 048
     Dates: start: 2012
  4. RITALIN [Suspect]
     Active Substance: METHYLPHENIDATE HYDROCHLORIDE
     Indication: RESTLESS LEGS SYNDROME
     Route: 065

REACTIONS (10)
  - Abdominal pain upper [Unknown]
  - Restless legs syndrome [Unknown]
  - Weight increased [Not Recovered/Not Resolved]
  - Paraesthesia [Unknown]
  - Night blindness [Not Recovered/Not Resolved]
  - Fatigue [Unknown]
  - Altered visual depth perception [Not Recovered/Not Resolved]
  - Hepatic enzyme increased [Unknown]
  - Multiple sclerosis relapse [Unknown]
  - Glare [Not Recovered/Not Resolved]

NARRATIVE: CASE EVENT DATE: 20160509
